FAERS Safety Report 6859427-0 (Version None)
Quarter: 2010Q3

REPORT INFORMATION
  Report Type: 
  Country: None (occurrence: None)
  Receive Date: 20100719
  Receipt Date: 20080227
  Transmission Date: 20110219
  Serious: No
  Sender: FDA-Public Use
  Company Number: US-PFIZER INC-2008020606

PATIENT
  Sex: Male
  Weight: 110 kg

DRUGS (13)
  1. CHANTIX [Suspect]
     Indication: SMOKING CESSATION THERAPY
     Route: 048
     Dates: start: 20071201
  2. WARFARIN SODIUM [Concomitant]
  3. PROTONIX [Concomitant]
  4. METFORMIN HCL [Concomitant]
  5. GLIPIZIDE [Concomitant]
  6. METOPROLOL [Concomitant]
  7. ATACAND [Concomitant]
  8. FUROSEMIDE [Concomitant]
  9. VENLAFAXINE HYDROCHLORIDE [Concomitant]
  10. LOTREL [Concomitant]
  11. LIPITOR [Concomitant]
  12. TAMSULOSIN HYDROCHLORIDE [Concomitant]
  13. VITAMINS [Concomitant]

REACTIONS (9)
  - DECREASED APPETITE [None]
  - DRY MOUTH [None]
  - DYSGEUSIA [None]
  - FATIGUE [None]
  - FLATULENCE [None]
  - INSOMNIA [None]
  - NAUSEA [None]
  - SOMNOLENCE [None]
  - WEIGHT INCREASED [None]
